FAERS Safety Report 23208204 (Version 2)
Quarter: 2023Q4

REPORT INFORMATION
  Report Type: Spontaneous
  Country: US (occurrence: US)
  Receive Date: 20231121
  Receipt Date: 20231127
  Transmission Date: 20240109
  Serious: No
  Sender: FDA-Public Use
  Company Number: US-JNJFOC-20231113314

PATIENT
  Age: 48 Year
  Sex: Female
  Weight: 60.382 kg

DRUGS (2)
  1. STELARA [Suspect]
     Active Substance: USTEKINUMAB
     Indication: Colitis ulcerative
     Route: 058
  2. STELARA [Suspect]
     Active Substance: USTEKINUMAB

REACTIONS (3)
  - Device deployment issue [Unknown]
  - Product dose omission issue [Unknown]
  - Product packaging issue [Unknown]

NARRATIVE: CASE EVENT DATE: 20231101
